FAERS Safety Report 6270022-7 (Version None)
Quarter: 2009Q3

REPORT INFORMATION
  Report Type: 
  Country: None (occurrence: None)
  Receive Date: 20090716
  Receipt Date: 20090706
  Transmission Date: 20100115
  Serious: Yes (Hospitalization, Other)
  Sender: FDA-Public Use
  Company Number: US-BAYER-200917936NA

PATIENT
  Age: 32 Year
  Sex: Female
  Weight: 68 kg

DRUGS (2)
  1. MIRENA [Suspect]
     Indication: CONTRACEPTION
     Dosage: CONTINUOUS
     Route: 015
     Dates: start: 20050221, end: 20090501
  2. MULTI-VITAMIN [Concomitant]
     Dosage: TOTAL DAILY DOSE: 1 DF
     Route: 048

REACTIONS (2)
  - IUD MIGRATION [None]
  - PREGNANCY WITH CONTRACEPTIVE DEVICE [None]
